FAERS Safety Report 7643767-1 (Version None)
Quarter: 2011Q3

REPORT INFORMATION
  Report Type: 
  Country: None (occurrence: None)
  Receive Date: 20110729
  Receipt Date: 20110721
  Transmission Date: 20111222
  Serious: Yes (Other)
  Sender: FDA-Public Use
  Company Number: US-US-EMD SERONO, INC.-7061218

PATIENT
  Sex: Female

DRUGS (3)
  1. REBIF [Suspect]
     Indication: MULTIPLE SCLEROSIS
     Route: 058
     Dates: start: 20101112, end: 20110501
  2. INSULIN [Concomitant]
     Indication: TYPE 2 DIABETES MELLITUS
  3. UNSPECIFIED ORAL MEDICATIONS [Concomitant]
     Indication: TYPE 2 DIABETES MELLITUS

REACTIONS (1)
  - PANCREATIC CARCINOMA [None]
